FAERS Safety Report 23088663 (Version 1)
Quarter: 2023Q4

REPORT INFORMATION
  Report Type: Spontaneous
  Country: US (occurrence: US)
  Receive Date: 20231020
  Receipt Date: 20231020
  Transmission Date: 20240110
  Serious: Yes (Other)
  Sender: FDA-Public Use
  Company Number: US-SANDOZ-SDZ2023US042099

PATIENT
  Age: 39 Year
  Sex: Male

DRUGS (9)
  1. FENTANYL [Suspect]
     Active Substance: FENTANYL
     Indication: Withdrawal syndrome
     Dosage: UNK
     Route: 065
  2. FENTANYL [Suspect]
     Active Substance: FENTANYL
     Indication: Agitation
  3. KETAMINE [Suspect]
     Active Substance: KETAMINE
     Indication: Withdrawal syndrome
     Dosage: UNK
     Route: 065
  4. KETAMINE [Suspect]
     Active Substance: KETAMINE
     Indication: Agitation
  5. PROPOFOL [Suspect]
     Active Substance: PROPOFOL
     Indication: Withdrawal syndrome
     Route: 065
  6. PROPOFOL [Suspect]
     Active Substance: PROPOFOL
     Indication: Withdrawal syndrome
     Route: 065
  7. PROPOFOL [Suspect]
     Active Substance: PROPOFOL
     Indication: Agitation
  8. QUETIAPINE [Suspect]
     Active Substance: QUETIAPINE
     Indication: Withdrawal syndrome
     Dosage: UNK
     Route: 065
  9. QUETIAPINE [Suspect]
     Active Substance: QUETIAPINE
     Indication: Agitation

REACTIONS (3)
  - Hyperthermia [Unknown]
  - Multiple drug therapy [Unknown]
  - Off label use [Unknown]
